FAERS Safety Report 23909116 (Version 1)
Quarter: 2024Q2

REPORT INFORMATION
  Report Type: Spontaneous
  Country: IN (occurrence: IN)
  Receive Date: 20240528
  Receipt Date: 20240528
  Transmission Date: 20240716
  Serious: Yes (Other)
  Sender: FDA-Public Use
  Company Number: IN-AMGEN-INDSP2024101944

PATIENT

DRUGS (4)
  1. APREMILAST [Suspect]
     Active Substance: APREMILAST
     Indication: Hand dermatitis
     Dosage: 30 MILLIGRAM, BID
     Route: 048
  2. APREMILAST [Suspect]
     Active Substance: APREMILAST
     Indication: Dermatitis
  3. APREMILAST [Suspect]
     Active Substance: APREMILAST
     Indication: Off label use
  4. MOMETASONE FUROATE [Concomitant]
     Active Substance: MOMETASONE FUROATE

REACTIONS (11)
  - Immunosuppression [Unknown]
  - Ill-defined disorder [Unknown]
  - Gastritis [Unknown]
  - Hand dermatitis [Unknown]
  - Dermatitis [Unknown]
  - Nausea [Unknown]
  - Diarrhoea [Unknown]
  - Headache [Unknown]
  - Gastrointestinal disorder [Unknown]
  - Off label use [Unknown]
  - Drug effective for unapproved indication [Unknown]
